FAERS Safety Report 8267125-4 (Version None)
Quarter: 2012Q2

REPORT INFORMATION
  Report Type: 
  Country: None (occurrence: None)
  Receive Date: 20120404
  Receipt Date: 20120316
  Transmission Date: 20120825
  Serious: Yes (Hospitalization)
  Sender: FDA-Public Use
  Company Number: 2012ZX000105

PATIENT
  Age: 4 Day
  Sex: Female
  Weight: 2.67 kg

DRUGS (1)
  1. SUMATRIPTAN [Suspect]
     Dosage: TRPL
     Route: 064

REACTIONS (3)
  - INFANTILE APNOEIC ATTACK [None]
  - BRADYCARDIA NEONATAL [None]
  - MATERNAL DRUGS AFFECTING FOETUS [None]
